FAERS Safety Report 14339708 (Version 1)
Quarter: 2017Q4

REPORT INFORMATION
  Report Type: Report from Study
  Country: US (occurrence: US)
  Receive Date: 20171230
  Receipt Date: 20171230
  Transmission Date: 20180321
  Serious: Yes (Other)
  Sender: FDA-Public Use
  Company Number: US-TESARO, INC-US-2017TSO03345

PATIENT

DRUGS (2)
  1. ZEJULA [Suspect]
     Active Substance: NIRAPARIB
     Dosage: 200 MG, QD
     Route: 048
     Dates: start: 20171107
  2. ZEJULA [Suspect]
     Active Substance: NIRAPARIB
     Indication: OVARIAN CANCER
     Dosage: 300  MG,QD
     Route: 048
     Dates: start: 20170927

REACTIONS (14)
  - Nephrolithiasis [Not Recovered/Not Resolved]
  - Arthralgia [Recovering/Resolving]
  - Dysuria [Not Recovered/Not Resolved]
  - Emotional distress [Unknown]
  - Gait disturbance [Not Recovered/Not Resolved]
  - Full blood count decreased [Recovered/Resolved]
  - Constipation [Recovered/Resolved]
  - Post herpetic neuralgia [Not Recovered/Not Resolved]
  - Skin discolouration [Not Recovered/Not Resolved]
  - Eastern Cooperative Oncology Group performance status [Unknown]
  - Urinary tract infection [Not Recovered/Not Resolved]
  - Herpes zoster [Not Recovered/Not Resolved]
  - Urine abnormality [Not Recovered/Not Resolved]
  - Fatigue [Recovering/Resolving]
